FAERS Safety Report 6227403-7 (Version None)
Quarter: 2009Q2

REPORT INFORMATION
  Report Type: 
  Country: None (occurrence: None)
  Receive Date: 20090610
  Receipt Date: 20090610
  Transmission Date: 20091009
  Serious: Yes (Other)
  Sender: FDA-Public Use
  Company Number: None

PATIENT
  Age: 48 Year
  Sex: Female
  Weight: 120.2032 kg

DRUGS (2)
  1. CLEOCIN [Suspect]
     Indication: TOOTH EXTRACTION
     Dosage: 1 CAPSUL EVERY 6 HOURS PO
     Route: 048
     Dates: start: 20090602, end: 20090608
  2. AYGESTIN [Concomitant]

REACTIONS (9)
  - LIP BLISTER [None]
  - LIP SWELLING [None]
  - NASAL DISORDER [None]
  - PRURITUS GENERALISED [None]
  - RASH [None]
  - SWELLING [None]
  - SWELLING FACE [None]
  - SWOLLEN TONGUE [None]
  - TONGUE DISORDER [None]
